FAERS Safety Report 6889041-2 (Version None)
Quarter: 2010Q3

REPORT INFORMATION
  Report Type: 
  Country: None (occurrence: None)
  Receive Date: 20100730
  Receipt Date: 20071213
  Transmission Date: 20110219
  Serious: No
  Sender: FDA-Public Use
  Company Number: US-PFIZER INC-2007103001

PATIENT
  Age: 62 Year
  Sex: Female
  Weight: 58.181 kg

DRUGS (2)
  1. LIPITOR [Suspect]
     Indication: BLOOD CHOLESTEROL INCREASED
     Dates: start: 20000101
  2. OTHER DERMATOLOGICAL PREPARATIONS [Concomitant]

REACTIONS (1)
  - INTENTIONAL DRUG MISUSE [None]
